FAERS Safety Report 23367806 (Version 1)
Quarter: 2024Q1

REPORT INFORMATION
  Report Type: Spontaneous
  Country: CN (occurrence: CN)
  Receive Date: 20240104
  Receipt Date: 20240104
  Transmission Date: 20240410
  Serious: Yes (Hospitalization)
  Sender: FDA-Public Use
  Company Number: None

PATIENT
  Age: 60 Year
  Sex: Male
  Weight: 77.5 kg

DRUGS (2)
  1. MANNITOL [Suspect]
     Active Substance: MANNITOL
     Indication: Swelling
     Dosage: 100 ML ONCE DAILY (DOSAGE FORM: INJECTION)
     Route: 041
     Dates: start: 20231220, end: 20231220
  2. MANNITOL [Suspect]
     Active Substance: MANNITOL
     Indication: Dehydration

REACTIONS (2)
  - Arteriosclerosis [Recovering/Resolving]
  - Capillary fragility increased [Recovered/Resolved]

NARRATIVE: CASE EVENT DATE: 20231220
